FAERS Safety Report 13177986 (Version 1)
Quarter: 2017Q1

REPORT INFORMATION
  Report Type: Report from Study
  Country: None (occurrence: BR)
  Receive Date: 20170202
  Receipt Date: 20170202
  Transmission Date: 20170428
  Serious: Yes (Disabling, Other)
  Sender: FDA-Public Use
  Company Number: BR-ABBVIE-17K-020-1848665-00

PATIENT
  Age: 72 Year
  Sex: Female
  Weight: 58 kg

DRUGS (8)
  1. DEFLAZACORT [Concomitant]
     Active Substance: DEFLAZACORT
     Indication: ARTHRITIS
     Route: 048
     Dates: start: 2013
  2. SELOZOK [Concomitant]
     Active Substance: METOPROLOL SUCCINATE
     Indication: HYPERTENSION
     Route: 048
     Dates: start: 2015
  3. AMLODIPINE [Concomitant]
     Active Substance: AMLODIPINE BESYLATE
     Indication: HYPERTENSION
     Route: 048
     Dates: start: 2015
  4. MELOXICAM. [Concomitant]
     Active Substance: MELOXICAM
     Indication: ARTHRITIS
     Route: 048
     Dates: start: 2013
  5. METHOTREXATE. [Concomitant]
     Active Substance: METHOTREXATE
     Indication: ARTHRITIS
     Route: 048
     Dates: start: 2013
  6. HYDROCHLOROTHIAZIDE. [Concomitant]
     Active Substance: HYDROCHLOROTHIAZIDE
     Indication: HYPERTENSION
     Route: 048
  7. ARADOIS [Concomitant]
     Active Substance: LOSARTAN POTASSIUM
     Indication: HYPERTENSION
     Route: 048
  8. HUMIRA [Suspect]
     Active Substance: ADALIMUMAB
     Indication: RHEUMATOID ARTHRITIS
     Route: 058
     Dates: start: 20160606, end: 201608

REACTIONS (10)
  - Malaise [Not Recovered/Not Resolved]
  - Diabetes mellitus [Recovering/Resolving]
  - Pain [Not Recovered/Not Resolved]
  - Wound [Recovered/Resolved]
  - Hypersensitivity [Recovered/Resolved]
  - Atrophy [Not Recovered/Not Resolved]
  - Blood cholesterol increased [Recovering/Resolving]
  - Abasia [Not Recovered/Not Resolved]
  - Chills [Not Recovered/Not Resolved]
  - Blood triglycerides abnormal [Unknown]

NARRATIVE: CASE EVENT DATE: 2016
